FAERS Safety Report 19258120 (Version 2)
Quarter: 2023Q1

REPORT INFORMATION
  Report Type: Spontaneous
  Country: US (occurrence: US)
  Receive Date: 20210514
  Receipt Date: 20230103
  Transmission Date: 20230418
  Serious: No
  Sender: FDA-Public Use
  Company Number: US-TAKEDA-2021TUS030223

PATIENT
  Sex: Male
  Weight: 59 kg

DRUGS (1)
  1. MOTEGRITY [Suspect]
     Active Substance: PRUCALOPRIDE SUCCINATE
     Indication: Irritable bowel syndrome
     Dosage: 1 MILLIGRAM, QD
     Route: 065

REACTIONS (4)
  - Rash [Unknown]
  - Dry skin [Unknown]
  - Off label use [Unknown]
  - Wrong technique in product usage process [Unknown]
